FAERS Safety Report 6194497-7 (Version None)
Quarter: 2009Q2

REPORT INFORMATION
  Report Type: 
  Country: None (occurrence: None)
  Receive Date: 20090519
  Receipt Date: 20090512
  Transmission Date: 20091009
  Serious: Yes (Death, Hospitalization, Other)
  Sender: FDA-Public Use
  Company Number: DE-BAYER-200919474GPV

PATIENT
  Age: 48 Year
  Sex: Male
  Weight: 122 kg

DRUGS (10)
  1. ALEMTUZUMAB [Suspect]
     Indication: CHRONIC LYMPHOCYTIC LEUKAEMIA
     Route: 058
     Dates: start: 20080723, end: 20080813
  2. DEXAMETHASONE 4MG TAB [Suspect]
     Indication: CHRONIC LYMPHOCYTIC LEUKAEMIA
     Route: 048
     Dates: start: 20080811, end: 20080814
  3. DEXAMETHASONE 4MG TAB [Suspect]
     Route: 048
     Dates: start: 20080801, end: 20080804
  4. NEULASTA [Suspect]
     Indication: CHRONIC LYMPHOCYTIC LEUKAEMIA
     Route: 058
     Dates: start: 20080728, end: 20080813
  5. NEULASTA [Suspect]
     Route: 058
     Dates: start: 20080813, end: 20080813
  6. MUCOSOLVAN [Concomitant]
  7. GABAPENTIN [Concomitant]
  8. ACYCLOVIR SODIUM [Concomitant]
     Dates: start: 20080731
  9. PANTOZOL [Concomitant]
  10. DORMICUM [Concomitant]
     Indication: NUCLEAR MAGNETIC RESONANCE IMAGING

REACTIONS (12)
  - BRONCHOPULMONARY ASPERGILLOSIS [None]
  - CEREBRAL ASPERGILLOSIS [None]
  - CEREBRAL TOXOPLASMOSIS [None]
  - DYSPHAGIA [None]
  - ENCEPHALITIS [None]
  - MENINGITIS BACTERIAL [None]
  - NEUTROPENIA [None]
  - PANCYTOPENIA [None]
  - RENAL FAILURE ACUTE [None]
  - RESPIRATORY FAILURE [None]
  - SEPSIS [None]
  - SOMNOLENCE [None]
